FAERS Safety Report 7807990-5 (Version None)
Quarter: 2011Q4

REPORT INFORMATION
  Report Type: 
  Country: None (occurrence: None)
  Receive Date: 20111011
  Receipt Date: 20111011
  Transmission Date: 20120403
  Serious: No
  Sender: FDA-Public Use
  Company Number: None

PATIENT
  Sex: Female

DRUGS (2)
  1. AZITHROMYCIN [Concomitant]
     Indication: INFECTION
     Dosage: ZPAK
     Route: 048
  2. AMPYRA [Suspect]
     Indication: MULTIPLE SCLEROSIS
     Dosage: 10MG
     Route: 048
     Dates: start: 20111007, end: 20111011

REACTIONS (2)
  - GAIT DISTURBANCE [None]
  - DRUG INEFFECTIVE [None]
